FAERS Safety Report 5627091-4 (Version None)
Quarter: 2008Q1

REPORT INFORMATION
  Report Type: 
  Country: None (occurrence: None)
  Receive Date: 20080118
  Receipt Date: 20071112
  Transmission Date: 20080703
  Serious: Yes (Other)
  Sender: FDA-Public Use
  Company Number: 2007-BP-24420BP

PATIENT
  Sex: Male

DRUGS (3)
  1. APTIVUS [Suspect]
     Indication: HIV INFECTION
     Dosage: (SEE TEXT,250MG/100MG),PO
     Route: 048
  2. NUCLEOSIDES (ALL OTHER THERAPEUTIC PRODUCTS) [Suspect]
     Indication: HIV INFECTION
  3. T-20 (ENFUVIRTIDE) [Concomitant]

REACTIONS (1)
  - RENAL FAILURE [None]
